FAERS Safety Report 17069617 (Version 2)
Quarter: 2020Q1

REPORT INFORMATION
  Report Type: Spontaneous
  Country: IL (occurrence: IL)
  Receive Date: 20191125
  Receipt Date: 20200108
  Transmission Date: 20200409
  Serious: No
  Sender: FDA-Public Use
  Company Number: IL-TEVA-2019-IL-1142592

PATIENT
  Age: 24 Year
  Sex: Male

DRUGS (1)
  1. DEXTROAMPHET SACCHARAT, AMPHET ASPARTATE, DEXTROAMPHET SULFATE AND AMPHET SULFAT [Suspect]
     Active Substance: AMPHETAMINE ASPARTATE\AMPHETAMINE SULFATE\DEXTROAMPHETAMINE SACCHARATE\DEXTROAMPHETAMINE SULFATE
     Indication: DISTURBANCE IN ATTENTION
     Dosage: TAKES ATTENT FOR SEVERAL YEARS
     Route: 065

REACTIONS (2)
  - Ischaemia [Recovered/Resolved]
  - Coagulopathy [Recovered/Resolved]
